FAERS Safety Report 15830980 (Version 1)
Quarter: 2019Q1

REPORT INFORMATION
  Report Type: Spontaneous
  Country: IT (occurrence: IT)
  Receive Date: 20190116
  Receipt Date: 20190116
  Transmission Date: 20190417
  Serious: Yes (Hospitalization)
  Sender: FDA-Public Use
  Company Number: IT-TEVA-2019-IT-998860

PATIENT
  Age: 38 Year
  Sex: Male
  Weight: 100 kg

DRUGS (2)
  1. AMOXICILLIN W/CLAVULANIC ACID [Suspect]
     Active Substance: AMOXICILLIN\CLAVULANIC ACID
     Indication: PYREXIA
     Route: 048
     Dates: start: 20170601, end: 20170601
  2. KETOPROFEN. [Suspect]
     Active Substance: KETOPROFEN
     Indication: PYREXIA
     Route: 048
     Dates: start: 20170601, end: 20170601

REACTIONS (3)
  - Hypertransaminasaemia [Recovered/Resolved]
  - Drug-induced liver injury [Recovered/Resolved]
  - Blood alkaline phosphatase increased [Recovered/Resolved]

NARRATIVE: CASE EVENT DATE: 20170612
